FAERS Safety Report 25969267 (Version 3)
Quarter: 2025Q4

REPORT INFORMATION
  Report Type: Spontaneous
  Country: US (occurrence: US)
  Receive Date: 20251028
  Receipt Date: 20251209
  Transmission Date: 20260118
  Serious: No
  Sender: GILEAD
  Company Number: US-GILEAD-2025-0733988

PATIENT
  Sex: Male

DRUGS (2)
  1. YEZTUGO [Suspect]
     Active Substance: LENACAPAVIR SODIUM
     Indication: Prophylaxis against HIV infection
     Dosage: UNK, 2 INJECTIONS IN ABDOMEN 4 INCHES APART
     Route: 058
     Dates: start: 20251023, end: 20251028
  2. YEZTUGO [Suspect]
     Active Substance: LENACAPAVIR SODIUM
     Indication: Prophylaxis against HIV infection
     Dosage: UNK TABLETS
     Route: 065
     Dates: start: 20251023

REACTIONS (2)
  - Injection site discharge [Unknown]
  - Injection site nodule [Unknown]

NARRATIVE: CASE EVENT DATE: 20251023
